FAERS Safety Report 22388823 (Version 1)
Quarter: 2023Q2

REPORT INFORMATION
  Report Type: Spontaneous
  Country: CN (occurrence: CN)
  Receive Date: 20230531
  Receipt Date: 20230531
  Transmission Date: 20230722
  Serious: Yes (Other)
  Sender: FDA-Public Use
  Company Number: CN-SA-SAC20230529001216

PATIENT
  Age: 67 Year
  Sex: Male
  Weight: 45 kg

DRUGS (5)
  1. OXALIPLATIN [Suspect]
     Active Substance: OXALIPLATIN
     Indication: Gastric cancer
     Dosage: 125 MG 1X
     Route: 041
     Dates: start: 20221206, end: 20221206
  2. FLUOROURACIL [Suspect]
     Active Substance: FLUOROURACIL
     Indication: Gastric cancer
     Dosage: 1625 MG QD
     Dates: start: 20221206, end: 20221207
  3. FLUOROURACIL [Suspect]
     Active Substance: FLUOROURACIL
     Dosage: 500 UNK
     Route: 041
     Dates: start: 20231206, end: 20231207
  4. LEUCOVORIN CALCIUM [Suspect]
     Active Substance: LEUCOVORIN CALCIUM
     Indication: Gastric cancer
     Dosage: 300 MG QD
     Route: 041
     Dates: start: 20221206, end: 20221207
  5. TRASTUZUMAB [Concomitant]
     Active Substance: TRASTUZUMAB
     Indication: Gastric cancer
     Dosage: 180 MG 1X
     Route: 041
     Dates: start: 20221206, end: 20221206

REACTIONS (1)
  - Cytopenia [Recovering/Resolving]

NARRATIVE: CASE EVENT DATE: 20221218
